FAERS Safety Report 6715260-1 (Version None)
Quarter: 2010Q2

REPORT INFORMATION
  Report Type: 
  Country: None (occurrence: None)
  Receive Date: 20100507
  Receipt Date: 20100428
  Transmission Date: 20101027
  Serious: Yes (Hospitalization, Other)
  Sender: FDA-Public Use
  Company Number: FR-BRISTOL-MYERS SQUIBB COMPANY-15092018

PATIENT
  Age: 82 Year
  Sex: Female

DRUGS (3)
  1. GLUCOPHAGE [Suspect]
     Dates: end: 20000818
  2. PRITOR [Suspect]
     Dosage: TABS
     Route: 048
     Dates: end: 20090818
  3. DIAMICRON [Suspect]
     Dosage: MODIFIED RELEASE TABS
     Route: 048
     Dates: end: 20090818

REACTIONS (5)
  - DEHYDRATION [None]
  - HYPOGLYCAEMIA [None]
  - LACTIC ACIDOSIS [None]
  - RENAL FAILURE ACUTE [None]
  - VOMITING [None]
